FAERS Safety Report 9364975 (Version 1)
Quarter: 2013Q2

REPORT INFORMATION
  Report Type: Other
  Country: GB (occurrence: GB)
  Receive Date: 20130624
  Receipt Date: 20130624
  Transmission Date: 20140414
  Serious: Yes (Other)
  Sender: FDA-Public Use
  Company Number: GB-WATSON-2013-11228

PATIENT
  Sex: 0

DRUGS (6)
  1. DOXYCYCLINE (WATSON LABORATORIES) [Suspect]
     Indication: MEIBOMIAN GLAND DYSFUNCTION
     Dosage: 100 MG, UNKNOWN
     Route: 048
     Dates: start: 20130322
  2. DOXYCYCLINE (WATSON LABORATORIES) [Suspect]
     Dosage: 50 MG, UNKNOWN
     Route: 048
     Dates: end: 20130530
  3. ESTRADOT [Concomitant]
     Indication: PRODUCT USED FOR UNKNOWN INDICATION
     Dosage: 37.5 MG, UNK
     Route: 065
  4. COD LIVER OIL W/VITAMINS NOS [Concomitant]
     Indication: PRODUCT USED FOR UNKNOWN INDICATION
     Route: 065
  5. GLUCOSAMINE                        /00943602/ [Concomitant]
     Indication: PRODUCT USED FOR UNKNOWN INDICATION
     Route: 065
  6. HYALURONIC ACID                    /06536401/ [Concomitant]
     Indication: PRODUCT USED FOR UNKNOWN INDICATION
     Route: 065

REACTIONS (3)
  - Dizziness [Not Recovered/Not Resolved]
  - Cardiac flutter [Recovered/Resolved]
  - Blindness transient [Recovered/Resolved]
